FAERS Safety Report 16965475 (Version 1)
Quarter: 2019Q4

REPORT INFORMATION
  Report Type: Spontaneous
  Country: US (occurrence: US)
  Receive Date: 20191028
  Receipt Date: 20191028
  Transmission Date: 20200122
  Serious: No
  Sender: FDA-Public Use
  Company Number: US-ELI_LILLY_AND_COMPANY-US201910012538

PATIENT
  Sex: Female

DRUGS (2)
  1. HUMULIN N [Suspect]
     Active Substance: INSULIN HUMAN
     Indication: GESTATIONAL DIABETES
     Dosage: 100 DOSAGE FORM, UNKNOWN
     Route: 058
     Dates: start: 20190918
  2. HUMULIN N [Suspect]
     Active Substance: INSULIN HUMAN
     Dosage: 100 DOSAGE FORM, UNKNOWN
     Route: 058
     Dates: start: 20190918

REACTIONS (1)
  - Maternal exposure during pregnancy [Unknown]
